FAERS Safety Report 7119504-6 (Version None)
Quarter: 2010Q4

REPORT INFORMATION
  Report Type: 
  Country: None (occurrence: None)
  Receive Date: 20101123
  Receipt Date: 20101116
  Transmission Date: 20110411
  Serious: Yes (Other)
  Sender: FDA-Public Use
  Company Number: US-JNJCH-2010026524

PATIENT
  Age: 40 Year
  Sex: Male
  Weight: 90.7 kg

DRUGS (1)
  1. ZYRTEC-D 12 HOUR [Suspect]
     Indication: HYPERSENSITIVITY
     Dosage: TEXT:ONE A DAY EVERY MORNING
     Route: 048

REACTIONS (2)
  - CONFUSIONAL STATE [None]
  - DISTURBANCE IN ATTENTION [None]
